FAERS Safety Report 10661461 (Version 1)
Quarter: 2014Q4

REPORT INFORMATION
  Report Type: Spontaneous
  Country: ES (occurrence: None)
  Receive Date: 20141216
  Receipt Date: 20141216
  Transmission Date: 20150529
  Serious: Yes (Hospitalization)
  Sender: FDA-Public Use
  Company Number: NSR_01716_2014

PATIENT
  Age: 19 Year
  Sex: Male

DRUGS (2)
  1. BACLOFEN. [Suspect]
     Active Substance: BACLOFEN
     Indication: PAIN
     Dosage: (DF INTRATHECAL)
     Route: 037
  2. BACLOFEN. [Suspect]
     Active Substance: BACLOFEN
     Indication: DYSTONIA
     Dosage: (DF INTRATHECAL)
     Route: 037

REACTIONS (6)
  - Hyperthermia [None]
  - Mental disorder [None]
  - Multi-organ failure [None]
  - Tachycardia [None]
  - Respiratory failure [None]
  - Haemodynamic instability [None]
